FAERS Safety Report 5045756-2 (Version None)
Quarter: 2006Q2

REPORT INFORMATION
  Report Type: 
  Country: None (occurrence: None)
  Receive Date: 20060601
  Receipt Date: 20060307
  Transmission Date: 20061013
  Serious: No
  Sender: FDA-Public Use
  Company Number: 2006-BP-01053BP(1)

PATIENT
  Age: 67 Year
  Sex: Male

DRUGS (2)
  1. SPIRIVA [Suspect]
     Indication: CHRONIC OBSTRUCTIVE PULMONARY DISEASE
     Dosage: 18 MCG (18 MCG, 1 IN 1 D), IH
     Route: 055
     Dates: start: 20060126, end: 20060127
  2. FLOMAX CAPSULES (TAMSULOSIN HYDROCHLORIDE) [Concomitant]

REACTIONS (3)
  - BLOOD URINE PRESENT [None]
  - CHROMATURIA [None]
  - URINE COLOUR ABNORMAL [None]
